FAERS Safety Report 8091668-X (Version None)
Quarter: 2012Q1

REPORT INFORMATION
  Report Type: 
  Country: None (occurrence: None)
  Receive Date: 20120129
  Receipt Date: 20110920
  Transmission Date: 20120608
  Serious: No
  Sender: FDA-Public Use
  Company Number: US-ABBOTT-11P-163-0856654-00

PATIENT
  Sex: Female
  Weight: 74.456 kg

DRUGS (7)
  1. HUMIRA [Suspect]
     Indication: ANKYLOSING SPONDYLITIS
     Dates: start: 20110818, end: 20110915
  2. PERCOCET [Concomitant]
     Indication: PAIN
  3. CELEBREX [Concomitant]
     Indication: PAIN
  4. CELEBREX [Concomitant]
     Indication: INFLAMMATION
  5. MORPHINE SULFATE [Concomitant]
     Indication: PAIN
  6. VITAMIN D [Concomitant]
     Indication: VITAMIN SUPPLEMENTATION
  7. IBUPROFEN [Concomitant]
     Indication: MIGRAINE

REACTIONS (4)
  - NAUSEA [None]
  - VISION BLURRED [None]
  - HYPOAESTHESIA [None]
  - MIGRAINE [None]
